FAERS Safety Report 21059571 (Version 3)
Quarter: 2022Q3

REPORT INFORMATION
  Report Type: Spontaneous
  Country: US (occurrence: US)
  Receive Date: 20220708
  Receipt Date: 20220908
  Transmission Date: 20221026
  Serious: Yes (Death, Hospitalization, Other)
  Sender: FDA-Public Use
  Company Number: US-CATALYST PHARMACEUTICALS, INC-2022CAT00470

PATIENT
  Sex: Male
  Weight: 113.38 kg

DRUGS (1)
  1. FIRDAPSE [Suspect]
     Active Substance: AMIFAMPRIDINE PHOSPHATE
     Indication: Myasthenic syndrome
     Dosage: ONE TABLET (10 MG), 3X/DAY
     Route: 048
     Dates: start: 202206, end: 20220626

REACTIONS (6)
  - Polyneuropathy in malignant disease [Fatal]
  - Anti-neuronal antibody positive [Fatal]
  - Neuropathy peripheral [Unknown]
  - Paraneoplastic syndrome [Not Recovered/Not Resolved]
  - Central nervous system inflammation [Not Recovered/Not Resolved]
  - Weight decreased [Unknown]

NARRATIVE: CASE EVENT DATE: 20220101
